FAERS Safety Report 5368668-3 (Version None)
Quarter: 2007Q2

REPORT INFORMATION
  Report Type: 
  Country: None (occurrence: None)
  Receive Date: 20070625
  Receipt Date: 20070509
  Transmission Date: 20071010
  Serious: No
  Sender: FDA-Public Use
  Company Number: US-BRISTOL-MYERS SQUIBB COMPANY-13696950

PATIENT
  Age: 48 Year
  Sex: Female

DRUGS (11)
  1. ORENCIA [Suspect]
     Indication: RHEUMATOID ARTHRITIS
     Route: 042
     Dates: start: 20061108
  2. WELLBUTRIN [Concomitant]
  3. ATENOLOL [Concomitant]
  4. PRILOSEC [Concomitant]
  5. PREDNISONE TAB [Concomitant]
  6. SPIRONOLACTONE [Concomitant]
  7. SULFASALAZINE [Concomitant]
  8. OXYCODONE HCL [Concomitant]
  9. ASPIRIN [Concomitant]
  10. LASIX [Concomitant]
  11. METHOCARBAMOL [Concomitant]

REACTIONS (1)
  - LYMPHOEDEMA [None]
